FAERS Safety Report 9284271 (Version 1)
Quarter: 2013Q2

REPORT INFORMATION
  Report Type: Spontaneous
  Country: US (occurrence: US)
  Receive Date: 20130510
  Receipt Date: 20130510
  Transmission Date: 20140414
  Serious: Yes (Death, Other)
  Sender: FDA-Public Use
  Company Number: US-ASTRAZENECA-2013SE07964

PATIENT
  Sex: Male

DRUGS (3)
  1. SEROQUEL [Suspect]
     Indication: DEMENTIA
     Dosage: TAKING 700 TO 950 MG PER DAY
     Route: 048
  2. SEROQUEL [Suspect]
     Indication: DEMENTIA
     Dosage: TAKING 700 TO 950 MG PER DAY
     Route: 048
  3. SEVERAL [Concomitant]

REACTIONS (5)
  - Overdose [Unknown]
  - General physical health deterioration [Fatal]
  - Somnolence [Unknown]
  - Hypersomnia [Unknown]
  - Off label use [Unknown]
